FAERS Safety Report 7717686-6 (Version None)
Quarter: 2011Q3

REPORT INFORMATION
  Report Type: 
  Country: None (occurrence: None)
  Receive Date: 20110824
  Receipt Date: 20110815
  Transmission Date: 20111222
  Serious: Yes (Other)
  Sender: FDA-Public Use
  Company Number: TPA2011A04927

PATIENT
  Age: 68 Year
  Sex: Male

DRUGS (1)
  1. ACTOS [Suspect]
     Dosage: 30 MG, 1 IN 1 D, PER ORAL
     Route: 048
     Dates: start: 20100401, end: 20110627

REACTIONS (1)
  - BLADDER CANCER [None]
